FAERS Safety Report 21982576 (Version 3)
Quarter: 2023Q4

REPORT INFORMATION
  Report Type: Report from Study
  Country: CA (occurrence: CA)
  Receive Date: 20230213
  Receipt Date: 20231027
  Transmission Date: 20240110
  Serious: Yes (Other)
  Sender: FDA-Public Use
  Company Number: CA-JNJFOC-20220845545

PATIENT
  Age: 14 Year
  Sex: Male
  Weight: 54 kg

DRUGS (4)
  1. REMICADE [Suspect]
     Active Substance: INFLIXIMAB
     Indication: Crohn^s disease
     Route: 041
     Dates: start: 20201002
  2. REMICADE [Suspect]
     Active Substance: INFLIXIMAB
     Route: 041
     Dates: start: 20220820
  3. REMICADE [Suspect]
     Active Substance: INFLIXIMAB
     Dosage: STAT DOSE
     Route: 042
  4. REMICADE [Suspect]
     Active Substance: INFLIXIMAB
     Route: 042

REACTIONS (3)
  - Anal abscess [Not Recovered/Not Resolved]
  - Anorectal discomfort [Unknown]
  - Fistula [Recovering/Resolving]
